FAERS Safety Report 6394080-4 (Version None)
Quarter: 2009Q4

REPORT INFORMATION
  Report Type: 
  Country: None (occurrence: None)
  Receive Date: 20091008
  Receipt Date: 20090928
  Transmission Date: 20100525
  Serious: Yes (Death)
  Sender: FDA-Public Use
  Company Number: JP-PFIZER INC-2009272538

PATIENT
  Age: 45 Year

DRUGS (2)
  1. ZOLOFT [Suspect]
     Indication: DEPRESSION
     Dosage: 25 MG, 1X/DAY
     Route: 048
     Dates: start: 20090803
  2. AMLODIPINE BESYLATE [Suspect]
     Route: 048
     Dates: start: 20090826

REACTIONS (8)
  - ARRHYTHMIA [None]
  - BACK PAIN [None]
  - CARDIAC ARREST [None]
  - ECZEMA [None]
  - HYPOAESTHESIA [None]
  - MALAISE [None]
  - RESPIRATION ABNORMAL [None]
  - RESPIRATORY ARREST [None]
